FAERS Safety Report 6059416-2 (Version None)
Quarter: 2009Q1

REPORT INFORMATION
  Report Type: 
  Country: None (occurrence: None)
  Receive Date: 20090130
  Receipt Date: 20090119
  Transmission Date: 20090719
  Serious: Yes (Hospitalization)
  Sender: FDA-Public Use
  Company Number: US-BAXTER-2008BH013045

PATIENT
  Age: 70 Year
  Sex: Female
  Weight: 53 kg

DRUGS (10)
  1. HEPARIN SODIUM INJECTION [Suspect]
     Indication: INTRAVENOUS CATHETER MANAGEMENT
     Route: 042
     Dates: start: 20070926
  2. LEVSIN [Concomitant]
     Indication: DRUG USE FOR UNKNOWN INDICATION
     Route: 065
  3. KAOPECTATE [Concomitant]
     Indication: DRUG USE FOR UNKNOWN INDICATION
     Route: 065
  4. LEXAPRO [Concomitant]
     Indication: DRUG USE FOR UNKNOWN INDICATION
     Route: 065
  5. MARINOL [Concomitant]
     Indication: DRUG USE FOR UNKNOWN INDICATION
     Route: 065
  6. MORPHINE [Concomitant]
     Indication: DRUG USE FOR UNKNOWN INDICATION
     Route: 065
  7. PAREGORIC [Concomitant]
     Indication: DRUG USE FOR UNKNOWN INDICATION
     Route: 065
  8. QUESTRAN [Concomitant]
     Indication: DRUG USE FOR UNKNOWN INDICATION
     Route: 065
  9. VICODIN [Concomitant]
     Indication: DRUG USE FOR UNKNOWN INDICATION
     Route: 065
  10. ZOFRAN [Concomitant]
     Indication: DRUG USE FOR UNKNOWN INDICATION
     Route: 042

REACTIONS (13)
  - ABDOMINAL PAIN [None]
  - ANAEMIA [None]
  - BLADDER DISORDER [None]
  - CYSTITIS INTERSTITIAL [None]
  - DYSPNOEA [None]
  - DYSURIA [None]
  - ERYTHEMA [None]
  - FLUSHING [None]
  - NAUSEA [None]
  - OEDEMA MOUTH [None]
  - RASH [None]
  - RENAL DISORDER [None]
  - VOMITING [None]
